FAERS Safety Report 4308493-5 (Version None)
Quarter: 2004Q1

REPORT INFORMATION
  Report Type: 
  Country: None (occurrence: None)
  Receive Date: 20040301
  Receipt Date: 20040227
  Transmission Date: 20041129
  Serious: Yes (Hospitalization)
  Sender: FDA-Public Use
  Company Number: FR-ROCHE-359988

PATIENT

DRUGS (3)
  1. LOXEN [Suspect]
     Route: 064
     Dates: start: 19980912, end: 19980920
  2. TRANDATE [Suspect]
     Route: 064
     Dates: start: 19980722, end: 19980912
  3. BISOPROLOL FUMARATE [Suspect]
     Route: 064
     Dates: start: 19980721, end: 19980722

REACTIONS (4)
  - CAESAREAN SECTION [None]
  - MATERNAL DRUGS AFFECTING FOETUS [None]
  - NEONATAL RESPIRATORY DISTRESS SYNDROME [None]
  - PREMATURE BABY [None]
